FAERS Safety Report 9550945 (Version 2)
Quarter: 2014Q2

REPORT INFORMATION
  Report Type: Spontaneous
  Country: US (occurrence: US)
  Receive Date: 20130924
  Receipt Date: 20140402
  Transmission Date: 20141212
  Serious: No
  Sender: FDA-Public Use
  Company Number: US-SANOFI-AVENTIS-2013SA049942

PATIENT
  Age: 70 Year
  Sex: Female

DRUGS (1)
  1. AUBAGIO [Suspect]
     Indication: MULTIPLE SCLEROSIS
     Route: 048
     Dates: start: 20130412, end: 20130826

REACTIONS (5)
  - Blood glucose increased [Not Recovered/Not Resolved]
  - Cystitis [Not Recovered/Not Resolved]
  - Feeling abnormal [Unknown]
  - Blood glucose abnormal [Unknown]
  - Eye disorder [Unknown]
